FAERS Safety Report 7565303-0 (Version None)
Quarter: 2011Q2

REPORT INFORMATION
  Report Type: 
  Country: None (occurrence: None)
  Receive Date: 20110623
  Receipt Date: 20110614
  Transmission Date: 20111010
  Serious: Yes (Hospitalization)
  Sender: FDA-Public Use
  Company Number: US-BIOGENIDEC-2011BI003022

PATIENT
  Age: 49 Year
  Sex: Female

DRUGS (1)
  1. TYSABRI [Suspect]
     Indication: MULTIPLE SCLEROSIS
     Route: 042
     Dates: start: 20101025

REACTIONS (6)
  - CYSTITIS [None]
  - ASTHMA [None]
  - CATHETER SITE PAIN [None]
  - MIGRAINE [None]
  - URTICARIA [None]
  - KIDNEY INFECTION [None]
